FAERS Safety Report 5151348-7 (Version None)
Quarter: 2006Q4

REPORT INFORMATION
  Report Type: 
  Country: None (occurrence: None)
  Receive Date: 20061115
  Receipt Date: 20061110
  Transmission Date: 20070319
  Serious: Yes (Other)
  Sender: FDA-Public Use
  Company Number: BE-GLAXOSMITHKLINE-B0446496A

PATIENT

DRUGS (4)
  1. CEFUROXIME [Suspect]
     Indication: LOWER RESPIRATORY TRACT INFECTION
     Dosage: 1500MG PER DAY
     Route: 048
     Dates: start: 20061109, end: 20061109
  2. DEXTROMETHORPHAN HYDROBROMIDE [Concomitant]
     Indication: BRONCHITIS ACUTE
  3. ACETYLCYSTEINE [Concomitant]
     Indication: BRONCHITIS ACUTE
  4. PARACETAMOL + PSEUDOEPHEDRINE [Concomitant]
     Indication: BRONCHITIS ACUTE

REACTIONS (4)
  - ANAPHYLACTIC REACTION [None]
  - HYPOTENSION [None]
  - LIP OEDEMA [None]
  - RASH [None]
